FAERS Safety Report 20336059 (Version 1)
Quarter: 2022Q1

REPORT INFORMATION
  Report Type: Spontaneous
  Country: US (occurrence: None)
  Receive Date: 20220113
  Receipt Date: 20220113
  Transmission Date: 20220423
  Serious: Yes (Hospitalization)
  Sender: FDA-Public Use
  Company Number: None

PATIENT
  Age: 63 Year
  Sex: Female
  Weight: 79.38 kg

DRUGS (13)
  1. IBRANCE [Suspect]
     Active Substance: PALBOCICLIB
     Indication: Breast cancer
     Dosage: FREQUENCY : DAILY;?
     Route: 048
     Dates: start: 20210714
  2. ASPIRIN [Concomitant]
     Active Substance: ASPIRIN
  3. NITROGLYCERIN [Concomitant]
     Active Substance: NITROGLYCERIN
  4. SIMVASTATIN [Concomitant]
     Active Substance: SIMVASTATIN
  5. HYDROCODONE BITARTRATE AND ACETAMINOPHEN [Concomitant]
     Active Substance: ACETAMINOPHEN\HYDROCODONE BITARTRATE
  6. GABAPENTIN [Concomitant]
     Active Substance: GABAPENTIN
  7. PROZAC [Concomitant]
     Active Substance: FLUOXETINE HYDROCHLORIDE
  8. OMEPRAZOLE [Concomitant]
     Active Substance: OMEPRAZOLE
  9. FOSAMAX [Concomitant]
     Active Substance: ALENDRONATE SODIUM
  10. ANASTROZOLE [Concomitant]
     Active Substance: ANASTROZOLE
  11. IBRANCE [Concomitant]
     Active Substance: PALBOCICLIB
  12. FENOFIBRATE [Concomitant]
     Active Substance: FENOFIBRATE
  13. BACTRIM DS [Concomitant]
     Active Substance: SULFAMETHOXAZOLE\TRIMETHOPRIM

REACTIONS (1)
  - Influenza [None]

NARRATIVE: CASE EVENT DATE: 20220111
